FAERS Safety Report 17077159 (Version 1)
Quarter: 2019Q4

REPORT INFORMATION
  Report Type: Report from Study
  Country: IE (occurrence: IE)
  Receive Date: 20191126
  Receipt Date: 20191126
  Transmission Date: 20200122
  Serious: Yes (Hospitalization)
  Sender: FDA-Public Use
  Company Number: IE-JNJFOC-20191133846

PATIENT
  Sex: Female

DRUGS (2)
  1. STELARA [Suspect]
     Active Substance: USTEKINUMAB
     Indication: SPONDYLOARTHROPATHY
     Route: 058
     Dates: start: 20191023
  2. LYRICA [Concomitant]
     Active Substance: PREGABALIN
     Route: 065

REACTIONS (1)
  - Hospitalisation [Unknown]
